FAERS Safety Report 18557046 (Version 2)
Quarter: 2020Q4

REPORT INFORMATION
  Report Type: Spontaneous
  Country: CL (occurrence: CL)
  Receive Date: 20201129
  Receipt Date: 20201210
  Transmission Date: 20210114
  Serious: Yes (Other)
  Sender: FDA-Public Use
  Company Number: CL-NOVOPROD-751750

PATIENT
  Age: 46 Year
  Sex: Female

DRUGS (1)
  1. OZEMPIC [Suspect]
     Active Substance: SEMAGLUTIDE
     Indication: PRODUCT USED FOR UNKNOWN INDICATION
     Dosage: UNK QW
     Route: 058
     Dates: start: 20200822

REACTIONS (6)
  - Laryngeal oedema [Recovered/Resolved]
  - Pruritus [Unknown]
  - Gastritis [Recovered/Resolved]
  - Urticaria [Unknown]
  - Drug hypersensitivity [Recovered/Resolved]
  - Vaginal oedema [Recovered/Resolved]

NARRATIVE: CASE EVENT DATE: 20200825
